FAERS Safety Report 7421139-2 (Version None)
Quarter: 2011Q2

REPORT INFORMATION
  Report Type: 
  Country: None (occurrence: None)
  Receive Date: 20110408
  Receipt Date: 20110329
  Transmission Date: 20111010
  Serious: Yes (Other)
  Sender: FDA-Public Use
  Company Number: 2007001677

PATIENT
  Age: 54 Year
  Sex: Male

DRUGS (46)
  1. ACETAMINOPHEN [Suspect]
  2. DOBUTAMINE (DOBUTAMINE) [Suspect]
  3. NOREPINEPHRINE BITARTRATE [Suspect]
  4. CHLORPHENIRAMINE MALEATE [Suspect]
     Dosage: 10 MG, 4X/DAY, INTRAVENOUS
     Route: 042
  5. THIAMINE (THIAMINE) [Suspect]
     Dosage: 100 MG DAILY, ORAL
     Route: 048
  6. ATROVENT [Concomitant]
  7. LANSOPRAZOLE [Suspect]
     Dosage: 30 MG UNIT DOSE
  8. SODIUM CHLORIDE [Suspect]
     Dosage: INTRAVENOUS
     Route: 042
  9. BACTROBAN [Suspect]
  10. AMOXICILLIN [Concomitant]
  11. METOCLOPRAMIDE [Concomitant]
  12. TAZOCIN (PIPERACILLIN SODIUM, TAZOBACTAM SODIUM) [Concomitant]
  13. SIMVASTATIN [Suspect]
     Dosage: 40 MG DAILY
  14. ACTRAPID (INSULIN) [Suspect]
     Dosage: INTRAVENOUS
     Route: 042
  15. ALFENTANIL [Suspect]
  16. LACTULOSE [Suspect]
     Dosage: 10 ML UNIT DOSE
  17. OMEPRAZOLE [Suspect]
     Dosage: 40 MG UNIT DOSE, INTRAVENOUS
     Route: 042
  18. CIPROFLOXACIN [Concomitant]
  19. MIDODRINE HYDROCHLORIDE [Concomitant]
  20. FLUCONAZOLE [Suspect]
     Dosage: 200 MG, 1X/DAY, INTRAVENOUS
     Route: 042
  21. SULFADIAZINE [Suspect]
     Dosage: TOPICAL
     Route: 061
  22. TINZAPARIN SODIUM (HEPARIN-FRACTION, SODIUM SALT) [Suspect]
     Dosage: 3500 MCG DAILY
  23. POTASSIUM CHLORIDE [Suspect]
  24. POTASSIUM PHOSPHATES [Suspect]
  25. VANCOMYCIN [Concomitant]
  26. HYDROCORTISONE SODIUM SUCCINATE (HYDROCORTISONE SODIUM SUCCINATE) POWD [Suspect]
     Dosage: 100 MG, 1X/DAY, INTRAVENOUS
     Route: 042
  27. CEFTRIAXONE SODIUM [Suspect]
     Dosage: 2 G UNIT DOSE, INTRAVENOUS
     Route: 042
  28. FUROSEMIDE [Suspect]
     Dosage: 20 MG, 2X/DAY, INTRAVENOUS
     Route: 042
  29. LORAZEPAM [Suspect]
  30. ALBUTEROL SULFATE [Suspect]
  31. AQUASEPT (TRICLOSAN) CUTANEOUS SOLUTION [Suspect]
  32. MAGNESIUM SULFATE [Suspect]
  33. SODIUM BICARBONATE IN PLASTIC CONTAINER [Suspect]
     Dosage: INTRAVENOUS
     Route: 042
  34. ACETYLSALICYLIC ACID (ACETYLSALICYLIC ACID) [Concomitant]
  35. ERYTHROMYCIN [Concomitant]
  36. CALCIUM CHLORIDE (CALCIUM CHLORIDE ANHYDROUS) [Suspect]
  37. CALCIUM GLUCONATE [Suspect]
     Dosage: 10 ML UNIT DOSE, INTRAVENOUS
     Route: 042
  38. PROPOFOL [Suspect]
  39. POTASSIUM CHLORIDE [Suspect]
     Dosage: 2 DF, 3X/DAY
  40. PANTOPRAZOLE [Concomitant]
  41. ZOPICLONE (ZOPICLONE) [Concomitant]
  42. FRAGMIN [Suspect]
     Dosage: 2500 IU DAILY, SUBCUTANEOUS
     Route: 058
  43. AMOXICILLIN [Suspect]
     Dosage: 1 G, 3X/DAY, INTRAVENOUS
     Route: 042
  44. ENOXAPARIN SODIUM [Suspect]
     Dosage: 20 MG DAILY, SUBCUTANEOUS
     Route: 058
  45. PHYTONADIONE [Suspect]
  46. CO-AMOXICLAV (CLAVULANATE POTASSIUM,AMOXICILLIN TRIHYDRATE) [Concomitant]

REACTIONS (1)
  - TOXIC EPIDERMAL NECROLYSIS [None]
